FAERS Safety Report 9882109 (Version 1)
Quarter: 2014Q1

REPORT INFORMATION
  Report Type: Spontaneous
  Country: FR (occurrence: FR)
  Receive Date: 20140207
  Receipt Date: 20140207
  Transmission Date: 20141002
  Serious: Yes (Life-Threatening, Hospitalization)
  Sender: FDA-Public Use
  Company Number: PHHY2014FR014405

PATIENT
  Age: 29 Year
  Sex: Male

DRUGS (5)
  1. VOLTARENE LP [Suspect]
     Indication: BACK PAIN
     Dosage: 100 MG, UNK
     Route: 048
     Dates: start: 20130524, end: 20130530
  2. ORBENINE [Suspect]
     Indication: INFECTION
     Dosage: UNK UKN, UNK
     Route: 048
     Dates: start: 20130603, end: 20130606
  3. ORBENINE [Suspect]
     Indication: LYMPHADENOPATHY
  4. MUPIDERM [Suspect]
     Indication: INFECTION
     Dosage: 2 %, UNK
     Route: 003
     Dates: start: 20130602, end: 20130606
  5. MUPIDERM [Suspect]
     Indication: LYMPHADENOPATHY

REACTIONS (1)
  - Cellulitis [Recovered/Resolved]
